FAERS Safety Report 9171119 (Version 2)
Quarter: 2013Q1

REPORT INFORMATION
  Report Type: Report from Study
  Country: DE (occurrence: DE)
  Receive Date: 20130319
  Receipt Date: 20130325
  Transmission Date: 20140127
  Serious: Yes (Hospitalization, Other)
  Sender: FDA-Public Use
  Company Number: DE-009507513-1303DEU007853

PATIENT
  Age: 40 Year
  Sex: Male
  Weight: 58 kg

DRUGS (11)
  1. VICTRELIS [Suspect]
     Indication: CHRONIC HEPATITIS C
     Dosage: 800 MG, TID
     Route: 048
     Dates: start: 20121011
  2. VICTRELIS [Suspect]
     Dosage: 3200MG
     Route: 048
  3. REBETOL [Suspect]
     Indication: CHRONIC HEPATITIS C
     Dosage: 1000MG, 1 IN 1 D
     Route: 048
     Dates: start: 20120911, end: 20121205
  4. REBETOL [Suspect]
     Dosage: 800 MG, QD
     Route: 048
     Dates: start: 20121206, end: 20130207
  5. REBETOL [Suspect]
     Dosage: 800 MG, QD RECENT DOSE RECEIVED ON 01MAR2013
     Route: 048
     Dates: start: 20130208
  6. PEGINTERFERON ALFA-2A [Suspect]
     Indication: CHRONIC HEPATITIS C
     Dosage: RECENT DOSE RECEIVED ON 26-FEB-2013 (180 MICROGRAM, 1 IN 1 WK)
     Route: 058
     Dates: start: 20120911
  7. CITALOPRAM [Suspect]
     Indication: DEPRESSION
     Dosage: 20MG
     Route: 048
     Dates: start: 2010
  8. CITALOPRAM [Suspect]
     Dosage: 20 MG, UNK
     Route: 048
     Dates: start: 20120911
  9. IBUPROFEN [Suspect]
     Indication: HEADACHE
     Dosage: 800 MG, PRN
     Route: 048
     Dates: start: 20130215
  10. SUBOXONE [Suspect]
     Dosage: 16 MG, UNK
  11. SUBUTEX [Concomitant]
     Indication: DRUG DEPENDENCE
     Dosage: 16 MG, QD
     Route: 060
     Dates: start: 20120911

REACTIONS (3)
  - Depression [Recovered/Resolved]
  - Anaemia [Not Recovered/Not Resolved]
  - Dizziness [Not Recovered/Not Resolved]
